FAERS Safety Report 6375451-9 (Version None)
Quarter: 2009Q3

REPORT INFORMATION
  Report Type: 
  Country: None (occurrence: None)
  Receive Date: 20090924
  Receipt Date: 20090910
  Transmission Date: 20100115
  Serious: Yes (Other)
  Sender: FDA-Public Use
  Company Number: CH-ELI_LILLY_AND_COMPANY-CH200909003200

PATIENT
  Sex: Female
  Weight: 58 kg

DRUGS (2)
  1. RALOXIFENE HYDROCHLORIDE [Suspect]
     Indication: OSTEOPOROSIS
     Dosage: 1 D/F, DAILY (1/D)
     Route: 048
     Dates: start: 20090816, end: 20090824
  2. CALPEROS [Concomitant]
     Dosage: 1 D/F, DAILY (1/D)
     Dates: start: 20090301

REACTIONS (11)
  - ABDOMINAL PAIN [None]
  - CONVERSION DISORDER [None]
  - DIZZINESS [None]
  - DYSGEUSIA [None]
  - DYSPNOEA [None]
  - ERUCTATION [None]
  - EYE SWELLING [None]
  - FLATULENCE [None]
  - GLOSSODYNIA [None]
  - NAUSEA [None]
  - VOMITING [None]
